FAERS Safety Report 9104340 (Version 7)
Quarter: 2025Q2

REPORT INFORMATION
  Report Type: Spontaneous
  Country: FI (occurrence: FI)
  Receive Date: 20130219
  Receipt Date: 20250515
  Transmission Date: 20250716
  Serious: Yes (Other)
  Sender: UCB
  Company Number: FI-UCBSA-078328

PATIENT
  Age: 0 Year
  Sex: Male
  Weight: 2.215 kg

DRUGS (33)
  1. KEPPRA [Suspect]
     Active Substance: LEVETIRACETAM
     Indication: Status epilepticus
     Route: 064
  2. KEPPRA [Suspect]
     Active Substance: LEVETIRACETAM
     Indication: Off label use
     Route: 064
  3. KEPPRA [Suspect]
     Active Substance: LEVETIRACETAM
     Dosage: 1000 MG, 2X/DAY (BID)
     Route: 064
     Dates: start: 20120729
  4. KEPPRA [Suspect]
     Active Substance: LEVETIRACETAM
     Route: 063
  5. LACOSAMIDE [Suspect]
     Active Substance: LACOSAMIDE
     Indication: Status epilepticus
     Dosage: 150 MG, 2X/DAY (BID)
     Route: 064
     Dates: start: 201207, end: 201207
  6. LACOSAMIDE [Suspect]
     Active Substance: LACOSAMIDE
     Indication: Off label use
     Dosage: 100 MG, 2X/DAY (BID)
     Route: 064
     Dates: start: 20120730
  7. LACOSAMIDE [Suspect]
     Active Substance: LACOSAMIDE
     Route: 063
  8. ENOXAPARIN [Suspect]
     Active Substance: ENOXAPARIN
     Indication: Haemorrhage intracranial
     Dosage: 60 MILLIGRAM, 2X/DAY (BID)
     Route: 064
  9. ENOXAPARIN [Suspect]
     Active Substance: ENOXAPARIN
     Indication: Thrombosis
     Dosage: 40 MG, 2X/DAY (BID)
     Route: 064
     Dates: start: 20120729
  10. ENOXAPARIN [Suspect]
     Active Substance: ENOXAPARIN
     Route: 063
  11. LABETALOL HYDROCHLORIDE [Concomitant]
     Active Substance: LABETALOL HYDROCHLORIDE
     Indication: Hypertension
     Dosage: 100 MG, 2X/DAY (BID)
     Route: 064
     Dates: start: 20120817, end: 20130206
  12. LABETALOL HYDROCHLORIDE [Concomitant]
     Active Substance: LABETALOL HYDROCHLORIDE
     Dosage: 100 MG, 2X/DAY (BID)
     Route: 063
     Dates: start: 20130206, end: 201302
  13. AMOXIN COMP [AMOXICILLIN;CLAVULANATE POTASSIUM] [Concomitant]
     Indication: Pneumonia
     Route: 064
     Dates: start: 20120820, end: 20120828
  14. ATIVAN [Concomitant]
     Active Substance: LORAZEPAM
     Indication: Product used for unknown indication
     Route: 064
  15. CEFTRIAXONE [Concomitant]
     Active Substance: CEFTRIAXONE
     Indication: Pneumonia
     Route: 064
  16. FOLVITE [Concomitant]
     Active Substance: FOLIC ACID
     Indication: High risk pregnancy
     Dosage: 4 MG, ONCE DAILY (QD)
     Route: 064
     Dates: start: 20120816, end: 20130206
  17. FOLVITE [Concomitant]
     Active Substance: FOLIC ACID
     Dosage: 4 MG, ONCE DAILY (QD)
     Route: 063
     Dates: start: 20130206, end: 201302
  18. HYDANTIN [PHENYTOIN] [Concomitant]
     Indication: Product used for unknown indication
     Route: 064
     Dates: start: 20120814, end: 20120910
  19. HEPARIN [Concomitant]
     Active Substance: HEPARIN SODIUM
     Indication: Cerebral venous sinus thrombosis
     Route: 064
     Dates: start: 20120728, end: 20120729
  20. ENOXAPARIN [Concomitant]
     Active Substance: ENOXAPARIN
     Indication: Cerebral venous sinus thrombosis
     Dosage: 40 MG, 2X/DAY (BID)
     Route: 064
     Dates: start: 20120729, end: 20130206
  21. ENOXAPARIN [Concomitant]
     Active Substance: ENOXAPARIN
     Dosage: 40 MG, 2X/DAY (BID)
     Route: 063
     Dates: start: 20130206, end: 201302
  22. LACTOBACILLUS ACIDOPHILUS [Concomitant]
     Active Substance: LACTOBACILLUS ACIDOPHILUS
     Indication: Prophylaxis
     Route: 064
     Dates: start: 20120820, end: 20120824
  23. LORAZEPAM [Concomitant]
     Active Substance: LORAZEPAM
     Indication: Epilepsy
  24. MIDAZOLAM [Concomitant]
     Active Substance: MIDAZOLAM
     Indication: Product used for unknown indication
     Route: 064
  25. OBSIDAN [FERROUS GLYCINE SULFATE] [Concomitant]
     Indication: Iron deficiency anaemia
     Route: 064
     Dates: start: 20120815, end: 20120903
  26. FOSPHENYTOIN SODIUM [Concomitant]
     Active Substance: FOSPHENYTOIN SODIUM
     Indication: Epilepsy
     Route: 064
  27. FOSPHENYTOIN SODIUM [Concomitant]
     Active Substance: FOSPHENYTOIN SODIUM
     Dosage: 250 MG, 2X/DAY (BID)
     Route: 064
     Dates: start: 20120729, end: 20120814
  28. PROPOFOL [Concomitant]
     Active Substance: PROPOFOL
     Indication: Product used for unknown indication
     Route: 064
  29. PROPOFOL [Concomitant]
     Active Substance: PROPOFOL
     Route: 063
  30. PHENYTOIN [Concomitant]
     Active Substance: PHENYTOIN
     Indication: Product used for unknown indication
     Route: 064
  31. PANTOPRAZOLE SODIUM [Concomitant]
     Active Substance: PANTOPRAZOLE SODIUM
     Indication: Prophylaxis
     Route: 064
     Dates: start: 20120729, end: 20120814
  32. DIAZEPAM [Concomitant]
     Active Substance: DIAZEPAM
     Indication: Seizure
     Route: 064
  33. PIPERACILLIN SODIUM\TAZOBACTAM SODIUM [Concomitant]
     Active Substance: PIPERACILLIN SODIUM\TAZOBACTAM SODIUM
     Indication: Pneumonia
     Route: 064
     Dates: end: 20120830

REACTIONS (7)
  - Premature baby [Recovered/Resolved]
  - Low birth weight baby [Unknown]
  - Somnolence [Recovered/Resolved]
  - Feeding disorder [Recovered/Resolved]
  - Maternal exposure during pregnancy [Unknown]
  - Exposure via breast milk [Unknown]
  - Off label use [Unknown]

NARRATIVE: CASE EVENT DATE: 20120701
